FAERS Safety Report 6814555-0 (Version None)
Quarter: 2010Q2

REPORT INFORMATION
  Report Type: 
  Country: None (occurrence: None)
  Receive Date: 20100629
  Receipt Date: 20100616
  Transmission Date: 20101027
  Serious: Yes (Hospitalization)
  Sender: FDA-Public Use
  Company Number: 2010AL000094

PATIENT
  Age: 74 Year
  Sex: Male
  Weight: 68 kg

DRUGS (1)
  1. PRALATREXATE (PRALATREXATE) [Suspect]
     Dosage: 329 MG;QOW;IV
     Route: 042
     Dates: start: 20100506

REACTIONS (6)
  - ASCITES [None]
  - CELLULITIS [None]
  - HAEMOGLOBIN DECREASED [None]
  - INTESTINAL OBSTRUCTION [None]
  - MUCOSAL INFLAMMATION [None]
  - RASH [None]
